FAERS Safety Report 17579945 (Version 16)
Quarter: 2025Q1

REPORT INFORMATION
  Report Type: Report from Study
  Country: US (occurrence: US)
  Receive Date: 20200325
  Receipt Date: 20250307
  Transmission Date: 20250409
  Serious: Yes (Other)
  Sender: TAKEDA
  Company Number: US-SHIRE-US202011109

PATIENT
  Age: 66 Year
  Sex: Female
  Weight: 67 kg

DRUGS (36)
  1. HUMAN IMMUNOGLOBULIN G [Suspect]
     Active Substance: HUMAN IMMUNOGLOBULIN G
     Indication: Immunodeficiency common variable
     Dosage: 36 GRAM, Q4WEEKS
     Dates: start: 20180327
  2. DIPHENHYDRAMINE HYDROCHLORIDE [Concomitant]
     Active Substance: DIPHENHYDRAMINE HYDROCHLORIDE
  3. VITAMIN D3 [Concomitant]
     Active Substance: CHOLECALCIFEROL
  4. LEVOCARNITINE [Concomitant]
     Active Substance: LEVOCARNITINE
  5. ACETAMINOPHEN\HYDROCODONE [Concomitant]
     Active Substance: ACETAMINOPHEN\HYDROCODONE
  6. OMEGA 3 6 9 COMPLEX [Concomitant]
  7. ESTRADIOL [Concomitant]
     Active Substance: ESTRADIOL
  8. RIZATRIPTAN [Concomitant]
     Active Substance: RIZATRIPTAN
  9. FLUTICASONE PROPIONATE [Concomitant]
     Active Substance: FLUTICASONE PROPIONATE
  10. MAGNESIUM [Concomitant]
     Active Substance: MAGNESIUM
  11. FIBER THERAPY [Concomitant]
  12. VALERIAN [Concomitant]
     Active Substance: VALERIAN
  13. ZYRTEC [Concomitant]
     Active Substance: CETIRIZINE HYDROCHLORIDE
  14. ALPHA LIPOIC ACID [Concomitant]
     Active Substance: .ALPHA.-LIPOIC ACID
  15. VITAMIN E [Concomitant]
     Active Substance: .ALPHA.-TOCOPHEROL
  16. GABAPENTIN [Concomitant]
     Active Substance: GABAPENTIN
  17. ALBUTEROL SULFATE [Concomitant]
     Active Substance: ALBUTEROL SULFATE
  18. MELATONIN [Concomitant]
     Active Substance: MELATONIN
  19. MARINOL [Concomitant]
     Active Substance: DRONABINOL
  20. PATADAY [Concomitant]
     Active Substance: OLOPATADINE HYDROCHLORIDE
  21. EPIPEN [Concomitant]
     Active Substance: EPINEPHRINE
  22. PROGESTERONE [Concomitant]
     Active Substance: PROGESTERONE
  23. LIDOCAINE [Concomitant]
     Active Substance: LIDOCAINE
  24. PRASTERONE [Concomitant]
     Active Substance: PRASTERONE
  25. HERBALS\TURMERIC [Concomitant]
     Active Substance: HERBALS\TURMERIC
  26. DIPHENHYDRAMINE [Concomitant]
     Active Substance: DIPHENHYDRAMINE
  27. EPINEPHRINE [Concomitant]
     Active Substance: EPINEPHRINE
  28. ACETAMINOPHEN [Concomitant]
     Active Substance: ACETAMINOPHEN
  29. NORCO [Concomitant]
     Active Substance: ACETAMINOPHEN\HYDROCODONE BITARTRATE
  30. VITAMIN B12 [Concomitant]
     Active Substance: CYANOCOBALAMIN
  31. 5 htp [Concomitant]
  32. VENTOLIN [Concomitant]
     Active Substance: ALBUTEROL SULFATE
  33. ACETAMINOPHEN\HYDROCODONE [Concomitant]
     Active Substance: ACETAMINOPHEN\HYDROCODONE
  34. OLOPATADINE HYDROCHLORIDE [Concomitant]
     Active Substance: OLOPATADINE HYDROCHLORIDE
  35. Hydrocodonema [Concomitant]
  36. VITAMIN B [Concomitant]
     Active Substance: VITAMIN B

REACTIONS (13)
  - Post procedural cellulitis [Unknown]
  - Neuralgia [Unknown]
  - Nasopharyngitis [Unknown]
  - Rosacea [Unknown]
  - COVID-19 [Unknown]
  - Pharyngitis streptococcal [Unknown]
  - Product dose omission issue [Unknown]
  - Seasonal allergy [Not Recovered/Not Resolved]
  - Sinus congestion [Unknown]
  - Sinusitis [Unknown]
  - Influenza [Not Recovered/Not Resolved]
  - Oropharyngeal pain [Unknown]
  - Injection site pruritus [Unknown]

NARRATIVE: CASE EVENT DATE: 20231216
